FAERS Safety Report 8107251-3 (Version None)
Quarter: 2012Q1

REPORT INFORMATION
  Report Type: 
  Country: None (occurrence: None)
  Receive Date: 20120202
  Receipt Date: 20120124
  Transmission Date: 20120608
  Serious: Yes (Other)
  Sender: FDA-Public Use
  Company Number: JP-SANOFI-AVENTIS-2012SA000678

PATIENT
  Age: 62 Year
  Sex: Female

DRUGS (2)
  1. CONTRAST MEDIA [Suspect]
     Route: 065
  2. ZOLPIDEM [Suspect]
     Route: 048
     Dates: start: 20101101, end: 20101201

REACTIONS (1)
  - DRUG ERUPTION [None]
